FAERS Safety Report 15172182 (Version 1)
Quarter: 2018Q3

REPORT INFORMATION
  Report Type: Spontaneous
  Country: US (occurrence: US)
  Receive Date: 20180720
  Receipt Date: 20180720
  Transmission Date: 20181010
  Serious: No
  Sender: FDA-Public Use
  Company Number: US-US WORLDMEDS, LLC-USW201805-000849

PATIENT
  Sex: Female
  Weight: 70.3 kg

DRUGS (7)
  1. LEVODOPA/CARBIDOPA [Concomitant]
     Active Substance: CARBIDOPA\LEVODOPA
  2. SEROQUEL [Concomitant]
     Active Substance: QUETIAPINE FUMARATE
  3. XADAGO [Suspect]
     Active Substance: SAFINAMIDE MESYLATE
     Dates: end: 20180530
  4. ROSUVASTATIN. [Concomitant]
     Active Substance: ROSUVASTATIN
     Indication: BLOOD CHOLESTEROL
  5. LAMICTAL [Concomitant]
     Active Substance: LAMOTRIGINE
     Indication: BIPOLAR DISORDER
  6. LEVOTHYROXINE. [Concomitant]
     Active Substance: LEVOTHYROXINE
     Indication: THYROID DISORDER
  7. CLONAZAPAM [Concomitant]
     Active Substance: CLONAZEPAM

REACTIONS (7)
  - Restlessness [Unknown]
  - Fall [Unknown]
  - Nausea [Unknown]
  - Head injury [Unknown]
  - Dyskinesia [Unknown]
  - Speech disorder [Unknown]
  - Sleep disorder [Unknown]
